FAERS Safety Report 20585100 (Version 2)
Quarter: 2022Q2

REPORT INFORMATION
  Report Type: Spontaneous
  Country: US (occurrence: US)
  Receive Date: 20220311
  Receipt Date: 20220516
  Transmission Date: 20220721
  Serious: Yes (Death)
  Sender: FDA-Public Use
  Company Number: US-ALXN-A202203282

PATIENT
  Age: 57 Year
  Sex: Male

DRUGS (2)
  1. SOLIRIS [Suspect]
     Active Substance: ECULIZUMAB
     Indication: Transplant failure
     Dosage: UNK
     Route: 065
     Dates: start: 202203
  2. SOLIRIS [Suspect]
     Active Substance: ECULIZUMAB
     Indication: Off label use

REACTIONS (3)
  - Transplant failure [Fatal]
  - Condition aggravated [Fatal]
  - Off label use [Unknown]
